FAERS Safety Report 5126282-9 (Version None)
Quarter: 2006Q3

REPORT INFORMATION
  Report Type: 
  Country: None (occurrence: None)
  Receive Date: 20060825
  Receipt Date: 20060417
  Transmission Date: 20061208
  Serious: Yes (Hospitalization)
  Sender: FDA-Public Use
  Company Number: 2005-0009047

PATIENT
  Age: 17 Year
  Sex: Male
  Weight: 57.5 kg

DRUGS (3)
  1. VISTIDE [Suspect]
     Indication: ADENOVIRUS INFECTION
     Dosage: 1 MG/KG, 1 IN 1 HR, INTRAVENOUS DRIP
     Route: 041
     Dates: start: 20051211, end: 20051211
  2. PROBENECID (PROBENECID) (1 G) [Concomitant]
  3. ANTIBIOTICS (ANTIBIOTICS) [Concomitant]

REACTIONS (2)
  - BLOOD CREATININE INCREASED [None]
  - WHITE BLOOD CELL COUNT DECREASED [None]
